FAERS Safety Report 8427857-1 (Version None)
Quarter: 2012Q2

REPORT INFORMATION
  Report Type: 
  Country: None (occurrence: None)
  Receive Date: 20120611
  Receipt Date: 20120531
  Transmission Date: 20120825
  Serious: Yes (Hospitalization)
  Sender: FDA-Public Use
  Company Number: FR-ASTRAZENECA-2012SE36427

PATIENT
  Sex: Male

DRUGS (2)
  1. VALSARTAN  AND HYDROCHLOROTHIAZIDE [Concomitant]
     Indication: HYPERTENSION
     Dosage: 160/25 MG/DAY
     Route: 048
  2. CRESTOR [Suspect]
     Indication: DYSLIPIDAEMIA
     Route: 048
     Dates: end: 20120401

REACTIONS (4)
  - HAEMOCHROMATOSIS [None]
  - CHEST PAIN [None]
  - RHABDOMYOLYSIS [None]
  - MUSCLE SPASMS [None]
